FAERS Safety Report 9418743 (Version 2)
Quarter: 2013Q3

REPORT INFORMATION
  Report Type: Spontaneous
  Country: US (occurrence: US)
  Receive Date: 20130725
  Receipt Date: 20130809
  Transmission Date: 20140515
  Serious: No
  Sender: FDA-Public Use
  Company Number: US-PFIZER INC-2013216165

PATIENT
  Sex: Male

DRUGS (2)
  1. LYRICA [Suspect]
     Indication: NEUROPATHY PERIPHERAL
     Dosage: UNK, 3X/DAY
  2. LYRICA [Suspect]
     Indication: POLYNEUROPATHY

REACTIONS (6)
  - Joint swelling [Unknown]
  - Local swelling [Unknown]
  - Hypoaesthesia [Unknown]
  - Balance disorder [Unknown]
  - Weight increased [Unknown]
  - Drug effect incomplete [Unknown]
